FAERS Safety Report 6577403-2 (Version None)
Quarter: 2010Q1

REPORT INFORMATION
  Report Type: 
  Country: None (occurrence: None)
  Receive Date: 20100211
  Receipt Date: 20100204
  Transmission Date: 20100710
  Serious: Yes (Other)
  Sender: FDA-Public Use
  Company Number: US-BAYER-200942664NA

PATIENT
  Age: 25 Year
  Sex: Female

DRUGS (3)
  1. BETASERON [Suspect]
     Indication: RELAPSING-REMITTING MULTIPLE SCLEROSIS
     Dosage: TOTAL DAILY DOSE: 8 MIU
     Route: 058
     Dates: start: 20040101, end: 20091212
  2. VITAMIN TAB [Concomitant]
     Indication: PREGNANCY
     Dosage: 1
     Dates: start: 20100115
  3. CITALOPRAM [Concomitant]
     Indication: DEPRESSION
     Dates: start: 20050101

REACTIONS (3)
  - ABORTION MISSED [None]
  - INTRA-UTERINE DEATH [None]
  - PREGNANCY [None]
